FAERS Safety Report 10017235 (Version 1)
Quarter: 2014Q1

REPORT INFORMATION
  Report Type: Spontaneous
  Country: US (occurrence: None)
  Receive Date: 20140313
  Receipt Date: 20140313
  Transmission Date: 20141002
  Serious: Yes (Other)
  Sender: FDA-Public Use
  Company Number: None

PATIENT
  Age: 60 Year
  Sex: Male
  Weight: 61.24 kg

DRUGS (1)
  1. CIPROFLOXACIN [Suspect]

REACTIONS (6)
  - Arthralgia [None]
  - Tendonitis [None]
  - Tinnitus [None]
  - Arthralgia [None]
  - Arthralgia [None]
  - Gait disturbance [None]
